FAERS Safety Report 4313184-0 (Version None)
Quarter: 2004Q1

REPORT INFORMATION
  Report Type: 
  Country: None (occurrence: None)
  Receive Date: 20040304
  Receipt Date: 20040219
  Transmission Date: 20041129
  Serious: Yes (Other)
  Sender: FDA-Public Use
  Company Number: CEL-2004-00224-ROC

PATIENT
  Age: 12 Year
  Sex: Male

DRUGS (2)
  1. METADATE CD [Suspect]
     Indication: ATTENTION DEFICIT/HYPERACTIVITY DISORDER
     Dosage: 40 MG QAM
     Dates: start: 20020101, end: 20031228
  2. METADATE ER TABLETS 10MG (METHYLPHNIDATE HYDROCHLORIDE) [Suspect]
     Indication: ATTENTION DEFICIT/HYPERACTIVITY DISORDER
     Dosage: 10 MG QD
     Dates: end: 20031228

REACTIONS (5)
  - ABNORMAL BEHAVIOUR [None]
  - GRAND MAL CONVULSION [None]
  - INCOHERENT [None]
  - POSTICTAL STATE [None]
  - THINKING ABNORMAL [None]
